FAERS Safety Report 7570757-X (Version None)
Quarter: 2011Q2

REPORT INFORMATION
  Report Type: 
  Country: None (occurrence: None)
  Receive Date: 20110624
  Receipt Date: 20110614
  Transmission Date: 20111010
  Serious: Yes (Other)
  Sender: FDA-Public Use
  Company Number: IT-ELI_LILLY_AND_COMPANY-IT201106004418

PATIENT
  Sex: Male

DRUGS (5)
  1. ALIMTA [Suspect]
     Indication: PERITONEAL MESOTHELIOMA MALIGNANT
     Dosage: 925 MG/CYCLE
     Route: 042
     Dates: start: 20110114, end: 20110506
  2. CISPLATIN [Concomitant]
     Indication: PERITONEAL MESOTHELIOMA MALIGNANT
     Dosage: 140 MG/CYCLE
     Route: 042
     Dates: start: 20110114, end: 20110506
  3. DECADRON [Concomitant]
  4. KYTRIL [Concomitant]
  5. TRIMETON [Concomitant]

REACTIONS (5)
  - VOMITING [None]
  - NAUSEA [None]
  - NEUTROPENIA [None]
  - ANAEMIA [None]
  - DYSPNOEA [None]
